FAERS Safety Report 10084655 (Version 1)
Quarter: 2014Q2

REPORT INFORMATION
  Report Type: Spontaneous
  Country: US (occurrence: US)
  Receive Date: 20140417
  Receipt Date: 20140417
  Transmission Date: 20141212
  Serious: Yes (Death)
  Sender: FDA-Public Use
  Company Number: US-FRI-1000066492

PATIENT
  Sex: Male

DRUGS (1)
  1. NAMENDA [Suspect]

REACTIONS (2)
  - Death [Fatal]
  - Drug ineffective [Unknown]
